FAERS Safety Report 7027540-3 (Version None)
Quarter: 2010Q4

REPORT INFORMATION
  Report Type: 
  Country: None (occurrence: None)
  Receive Date: 20101004
  Receipt Date: 20100901
  Transmission Date: 20110411
  Serious: Yes (Other)
  Sender: FDA-Public Use
  Company Number: CN-SANOFI-AVENTIS-2010SA052401

PATIENT
  Age: 42 Year
  Sex: Male
  Weight: 70 kg

DRUGS (8)
  1. PLAVIX [Suspect]
     Indication: PERCUTANEOUS CORONARY INTERVENTION
     Route: 048
     Dates: start: 20100515
  2. PLAVIX [Suspect]
     Indication: ANGINA PECTORIS
     Route: 048
     Dates: start: 20100515
  3. PLAVIX [Suspect]
     Indication: STENT PLACEMENT
     Route: 048
     Dates: start: 20100515
  4. ASPIRIN [Concomitant]
     Indication: PERCUTANEOUS CORONARY INTERVENTION
     Dosage: DOSE:1 UNIT(S)
     Route: 048
     Dates: start: 20100515
  5. ASPIRIN [Concomitant]
     Indication: ANGINA PECTORIS
     Dosage: DOSE:1 UNIT(S)
     Route: 048
     Dates: start: 20100515
  6. ASPIRIN [Concomitant]
     Indication: STENT PLACEMENT
     Dosage: DOSE:1 UNIT(S)
     Route: 048
     Dates: start: 20100515
  7. ISOSORBIDE MONONITRATE [Concomitant]
     Indication: ANGINA PECTORIS
     Dosage: DOSE:1 UNIT(S)
     Route: 048
  8. ATORVASTATIN [Concomitant]
     Indication: HYPERLIPIDAEMIA
     Dosage: DOSE:1 UNIT(S)
     Route: 048

REACTIONS (3)
  - ANGINA PECTORIS [None]
  - CHEST DISCOMFORT [None]
  - OFF LABEL USE [None]
